FAERS Safety Report 11694138 (Version 2)
Quarter: 2015Q4

REPORT INFORMATION
  Report Type: Spontaneous
  Country: US (occurrence: US)
  Receive Date: 20151103
  Receipt Date: 20151120
  Transmission Date: 20160304
  Serious: Yes (Other)
  Sender: FDA-Public Use
  Company Number: US-SMITH AND NEPHEW, INC-2015SMT00453

PATIENT
  Age: 43 Year
  Sex: Male
  Weight: 145.13 kg

DRUGS (6)
  1. NOVOLOG INSULIN [Concomitant]
     Dosage: UNK, AS NEEDED
     Dates: start: 2002
  2. PROVENTIL HFA [Concomitant]
     Active Substance: ALBUTEROL SULFATE
     Dosage: UNK, AS NEEDED
  3. ANTIDEPRESSANTS (NON-SPECIFIC) [Concomitant]
     Dosage: UNK
     Dates: start: 2013
  4. REGRANEX [Suspect]
     Active Substance: BECAPLERMIN
     Indication: DIABETIC FOOT
     Dosage: UNK UNK, 1X/DAY
     Route: 061
     Dates: start: 2015, end: 201509
  5. GENTAMYCIN CREAM [Concomitant]
     Active Substance: GENTAMICIN
     Indication: DIABETIC FOOT
     Dosage: UNK, 1X/DAY
     Route: 061
  6. ADVAIR HFA [Concomitant]
     Active Substance: FLUTICASONE PROPIONATE\SALMETEROL XINAFOATE
     Dosage: UNK, 2X/DAY

REACTIONS (2)
  - Wound complication [Recovering/Resolving]
  - Escherichia infection [Recovered/Resolved]

NARRATIVE: CASE EVENT DATE: 201509
